FAERS Safety Report 16070883 (Version 1)
Quarter: 2019Q1

REPORT INFORMATION
  Report Type: Spontaneous
  Country: US (occurrence: US)
  Receive Date: 20190314
  Receipt Date: 20190314
  Transmission Date: 20190418
  Serious: No
  Sender: FDA-Public Use
  Company Number: US-B.I. PHARMACEUTICALS,INC./RIDGEFIELD-2019-BI-011426

PATIENT
  Sex: Female

DRUGS (1)
  1. SPIRIVA RESPIMAT [Suspect]
     Active Substance: TIOTROPIUM BROMIDE
     Indication: CHRONIC OBSTRUCTIVE PULMONARY DISEASE
     Dosage: 2 PUFFS DAILY;   STRENGTH: 2.5 MCG; FORMULATION: INHALATION SPRAY? ACTION(S) TAKEN: DOSE NOT CHANGED
     Route: 055
     Dates: start: 201610

REACTIONS (1)
  - Nasopharyngitis [Unknown]
